FAERS Safety Report 8510692 (Version 5)
Quarter: 2020Q2

REPORT INFORMATION
  Report Type: Spontaneous
  Country: BR (occurrence: BR)
  Receive Date: 20120413
  Receipt Date: 20200425
  Transmission Date: 20200714
  Serious: Yes (Other)
  Sender: FDA-Public Use
  Company Number: BR-AMGEN-BRASP2012022111

PATIENT
  Age: 47 Year
  Sex: Female
  Weight: 43 kg

DRUGS (5)
  1. ENBREL [Suspect]
     Active Substance: ETANERCEPT
     Dosage: 50 MG, ONCE WEEKLY
     Route: 058
     Dates: start: 20120215
  2. ENBREL [Suspect]
     Active Substance: ETANERCEPT
     Dosage: ONCE PER WEEK
     Route: 065
  3. PREDNISOLONE. [Concomitant]
     Active Substance: PREDNISOLONE
     Indication: JUVENILE IDIOPATHIC ARTHRITIS
     Dosage: UNK
     Route: 065
     Dates: start: 1982
  4. ENBREL [Suspect]
     Active Substance: ETANERCEPT
     Dosage: EVERY 10 DAYS
     Route: 065
  5. ENBREL [Suspect]
     Active Substance: ETANERCEPT
     Indication: JUVENILE IDIOPATHIC ARTHRITIS
     Dosage: UNK
     Route: 058
     Dates: start: 2010, end: 2010

REACTIONS (7)
  - Off label use [Unknown]
  - Arthritis infective [Unknown]
  - Therapeutic product effect incomplete [Not Recovered/Not Resolved]
  - Wrong technique in product usage process [Unknown]
  - Device related infection [Unknown]
  - Complication associated with device [Unknown]
  - Injection site pain [Not Recovered/Not Resolved]

NARRATIVE: CASE EVENT DATE: 2010
